FAERS Safety Report 5253960-3 (Version None)
Quarter: 2007Q1

REPORT INFORMATION
  Report Type: 
  Country: None (occurrence: None)
  Receive Date: 20070228
  Receipt Date: 20070228
  Transmission Date: 20070707
  Serious: Yes (Hospitalization)
  Sender: FDA-Public Use
  Company Number: None

PATIENT
  Age: 39 Year
  Sex: Female
  Weight: 61.6892 kg

DRUGS (1)
  1. BUPROPION HCL [Suspect]
     Dosage: ONE BID PO
     Route: 048
     Dates: start: 20070108, end: 20070219

REACTIONS (1)
  - TONIC CONVULSION [None]
